FAERS Safety Report 8058989-8 (Version None)
Quarter: 2012Q1

REPORT INFORMATION
  Report Type: 
  Country: None (occurrence: None)
  Receive Date: 20120120
  Receipt Date: 20120117
  Transmission Date: 20120608
  Serious: Yes (Other)
  Sender: FDA-Public Use
  Company Number: US-JNJFOC-2005105243

PATIENT
  Sex: Male

DRUGS (2)
  1. SUDAFED 24 HOUR [Suspect]
     Indication: SINUS HEADACHE
     Dosage: DAILY DOSE TEXT: 10 TABS IN 24 HOURS
     Route: 048
     Dates: start: 20050722, end: 20050723
  2. SUDAFED 24 HOUR [Suspect]
     Route: 048

REACTIONS (5)
  - PSYCHOMOTOR HYPERACTIVITY [None]
  - NAUSEA [None]
  - MEDICATION ERROR [None]
  - VOMITING [None]
  - OVERDOSE [None]
